FAERS Safety Report 16831940 (Version 1)
Quarter: 2019Q3

REPORT INFORMATION
  Report Type: Spontaneous
  Country: IT (occurrence: IT)
  Receive Date: 20190920
  Receipt Date: 20190920
  Transmission Date: 20191005
  Serious: Yes (Other)
  Sender: FDA-Public Use
  Company Number: IT-TEVA-2019-IT-1110073

PATIENT
  Sex: Male

DRUGS (1)
  1. TADAFIL TEVA [Suspect]
     Active Substance: TADALAFIL

REACTIONS (3)
  - Mydriasis [Recovered/Resolved]
  - Pupillary light reflex tests abnormal [Recovered/Resolved]
  - Alcohol interaction [Recovered/Resolved]
